FAERS Safety Report 23799719 (Version 1)
Quarter: 2024Q2

REPORT INFORMATION
  Report Type: Spontaneous
  Country: US (occurrence: US)
  Receive Date: 20240430
  Receipt Date: 20240430
  Transmission Date: 20240716
  Serious: No
  Sender: FDA-Public Use
  Company Number: US-MYLANLABS-2024M1033586

PATIENT
  Sex: Female

DRUGS (1)
  1. BREYNA [Suspect]
     Active Substance: BUDESONIDE\FORMOTEROL FUMARATE
     Indication: Product used for unknown indication
     Dosage: 160/ 4.5 MICROGRAM (2 PUFFS BY MOUTH, AND INTO THE LUNGS)
     Route: 055

REACTIONS (5)
  - Upper respiratory tract infection [Recovering/Resolving]
  - Sinusitis [Recovering/Resolving]
  - Aphasia [Recovering/Resolving]
  - Nasopharyngitis [Recovering/Resolving]
  - Product substitution issue [Unknown]
